FAERS Safety Report 8950940 (Version 1)
Quarter: 2012Q4

REPORT INFORMATION
  Report Type: Report from Study
  Country: GR (occurrence: GR)
  Receive Date: 20121207
  Receipt Date: 20121207
  Transmission Date: 20130627
  Serious: Yes (Hospitalization)
  Sender: FDA-Public Use
  Company Number: GR-PFIZER INC-2012303677

PATIENT
  Age: 61 Year
  Sex: Male

DRUGS (4)
  1. ANGORON [Suspect]
     Indication: ATRIAL FIBRILLATION
     Dosage: 200 mg, five times per week
     Route: 065
     Dates: start: 20100820, end: 201010
  2. AMLODIPINE [Concomitant]
     Dosage: UNK
     Dates: start: 2010
  3. ZESTORETIC ^ZENECA^ [Concomitant]
     Dosage: UNK
     Dates: start: 201003
  4. SINTROM [Concomitant]
     Dosage: UNK

REACTIONS (1)
  - Syncope [Recovered/Resolved]
